FAERS Safety Report 11272910 (Version 3)
Quarter: 2015Q3

REPORT INFORMATION
  Report Type: Spontaneous
  Country: US (occurrence: US)
  Receive Date: 20150715
  Receipt Date: 20150907
  Transmission Date: 20151125
  Serious: No
  Sender: FDA-Public Use
  Company Number: US-PFIZER INC-2015232678

PATIENT
  Sex: Female

DRUGS (1)
  1. JUNIOR STRENGTH ADVIL [Suspect]
     Active Substance: IBUPROFEN
     Indication: PROCEDURAL PAIN
     Dosage: 1 TABLET, SINGLE
     Dates: start: 20150709

REACTIONS (5)
  - Paraesthesia [Unknown]
  - Hypoaesthesia oral [Unknown]
  - Drug administered to patient of inappropriate age [Unknown]
  - Product taste abnormal [Recovered/Resolved]
  - Dysgeusia [Unknown]

NARRATIVE: CASE EVENT DATE: 20150709
